FAERS Safety Report 8512526-X (Version None)
Quarter: 2012Q3

REPORT INFORMATION
  Report Type: 
  Country: None (occurrence: None)
  Receive Date: 20120716
  Receipt Date: 20120710
  Transmission Date: 20120928
  Serious: Yes (Hospitalization)
  Sender: FDA-Public Use
  Company Number: BR-GLAXOSMITHKLINE-B0814157A

PATIENT
  Sex: Female
  Weight: 69 kg

DRUGS (4)
  1. PROPAFENONE HCL [Suspect]
     Indication: PRODUCT USED FOR UNKNOWN INDICATION
     Dosage: 150MG TWICE PER DAY
     Route: 048
     Dates: start: 20120601, end: 20120601
  2. PROPAFENONE HCL [Suspect]
     Dosage: 600MG PER DAY
     Route: 065
  3. PROPAFENONE HCL [Suspect]
     Indication: ARRHYTHMIA
     Dosage: 300MG PER DAY
     Route: 065
     Dates: start: 20090101
  4. SIMVASTATIN [Concomitant]
     Indication: BLOOD CHOLESTEROL
     Dosage: 30MG IN THE MORNING
     Route: 048

REACTIONS (6)
  - ARRHYTHMIA [None]
  - DYSGEUSIA [None]
  - VISION BLURRED [None]
  - MALAISE [None]
  - DIZZINESS [None]
  - HEART RATE INCREASED [None]
